FAERS Safety Report 7267712-6 (Version None)
Quarter: 2011Q1

REPORT INFORMATION
  Report Type: 
  Country: None (occurrence: None)
  Receive Date: 20110201
  Receipt Date: 20110125
  Transmission Date: 20110831
  Serious: Yes (Hospitalization, Other)
  Sender: FDA-Public Use
  Company Number: US-PFIZER INC-2010144989

PATIENT
  Sex: Male

DRUGS (3)
  1. PAXIL [Concomitant]
     Indication: DEPRESSION
     Dosage: UNK
     Dates: start: 19940101
  2. CHANTIX [Suspect]
     Indication: SMOKING CESSATION THERAPY
     Dosage: 0.5 AND 1 MG
     Dates: start: 20071016, end: 20071101
  3. PAXIL [Concomitant]
     Indication: ANXIETY

REACTIONS (5)
  - HALLUCINATION, AUDITORY [None]
  - DEPRESSION [None]
  - SUICIDE ATTEMPT [None]
  - DELUSIONAL PERCEPTION [None]
  - ANXIETY [None]
